FAERS Safety Report 4262242-8 (Version None)
Quarter: 2004Q1

REPORT INFORMATION
  Report Type: 
  Country: None (occurrence: None)
  Receive Date: 20040102
  Receipt Date: 20031125
  Transmission Date: 20041129
  Serious: Yes (Hospitalization, Other)
  Sender: FDA-Public Use
  Company Number: PHFR2003GB04553

PATIENT
  Age: 45 Year
  Sex: Male

DRUGS (3)
  1. CLOZARIL [Suspect]
     Indication: MEDICATION ERROR
     Dosage: 350MG OVERDOSE
     Route: 048
     Dates: start: 20031125
  2. CHLORPROMAZINE [Concomitant]
     Dosage: 200 MG/DAY
  3. NITRAZEPAM [Concomitant]

REACTIONS (4)
  - ACCIDENTAL EXPOSURE [None]
  - HAEMATEMESIS [None]
  - HEART RATE INCREASED [None]
  - SOMNOLENCE [None]
